FAERS Safety Report 22250138 (Version 4)
Quarter: 2024Q1

REPORT INFORMATION
  Report Type: Spontaneous
  Country: US (occurrence: US)
  Receive Date: 20230425
  Receipt Date: 20240321
  Transmission Date: 20240409
  Serious: Yes (Hospitalization, Other)
  Sender: FDA-Public Use
  Company Number: US-PFIZER INC-PV202300072687

PATIENT
  Age: 67 Year
  Sex: Male
  Weight: 84.898 kg

DRUGS (13)
  1. BOSULIF [Suspect]
     Active Substance: BOSUTINIB MONOHYDRATE
     Indication: Chronic myeloid leukaemia
     Dosage: TAKE 1 TABLET DAILY
     Route: 048
     Dates: start: 20230425
  2. BOSULIF [Suspect]
     Active Substance: BOSUTINIB MONOHYDRATE
     Indication: White blood cell count increased
     Dosage: 400MG DAILY
     Dates: start: 20231010
  3. BOSULIF [Suspect]
     Active Substance: BOSUTINIB MONOHYDRATE
     Indication: Platelet count decreased
     Dosage: 400MG DAILY
     Dates: start: 20231031
  4. BOSULIF [Suspect]
     Active Substance: BOSUTINIB MONOHYDRATE
     Dosage: 400MG DAILY
     Dates: start: 20231205
  5. BOSULIF [Suspect]
     Active Substance: BOSUTINIB MONOHYDRATE
     Dosage: 400MG DAILY
     Dates: start: 20240206
  6. BOSULIF [Suspect]
     Active Substance: BOSUTINIB MONOHYDRATE
     Dosage: 400 MG QD (ONCE A DAY)
     Dates: start: 20240205
  7. BOSULIF [Suspect]
     Active Substance: BOSUTINIB MONOHYDRATE
     Dosage: 400MG DAILY
     Dates: start: 20230620
  8. BOSULIF [Suspect]
     Active Substance: BOSUTINIB MONOHYDRATE
     Dosage: 400MG DAILY
     Dates: start: 20230711
  9. BOSULIF [Suspect]
     Active Substance: BOSUTINIB MONOHYDRATE
     Dosage: 400MG DAILY
     Dates: start: 20230808
  10. BOSULIF [Suspect]
     Active Substance: BOSUTINIB MONOHYDRATE
     Dosage: 400 MG QD (ONCE A DAY)
     Dates: start: 20230822
  11. BOSULIF [Suspect]
     Active Substance: BOSUTINIB MONOHYDRATE
     Dosage: 400 MG QD (ONCE A DAY)
     Dates: start: 20230902
  12. BOSULIF [Suspect]
     Active Substance: BOSUTINIB MONOHYDRATE
     Dosage: 400 MG QD (ONCE A DAY)
     Dates: start: 20230919
  13. BOSULIF [Suspect]
     Active Substance: BOSUTINIB MONOHYDRATE
     Dosage: 400 MG DAILY
     Dates: start: 20230502

REACTIONS (6)
  - Gastrointestinal haemorrhage [Unknown]
  - Thrombocytopenia [Unknown]
  - Cerebrovascular accident [Unknown]
  - Leukocytosis [Unknown]
  - Anaemia [Unknown]
  - Diarrhoea [Unknown]

NARRATIVE: CASE EVENT DATE: 20230101
